FAERS Safety Report 10931247 (Version 1)
Quarter: 2015Q1

REPORT INFORMATION
  Report Type: Spontaneous
  Country: IT (occurrence: None)
  Receive Date: 20150317
  Receipt Date: 20150317
  Transmission Date: 20150721
  Serious: Yes (Hospitalization)
  Sender: FDA-Public Use
  Company Number: 2781365

PATIENT
  Age: 60 Year
  Sex: Female

DRUGS (2)
  1. TEICOPLANIN [Concomitant]
     Active Substance: TEICOPLANIN
  2. MEROPENEM. [Suspect]
     Active Substance: MEROPENEM
     Indication: SPINAL OSTEOARTHRITIS
     Dosage: 4 G GRAM(S) (UNKNOWN) INTRAVENOUS (NOT OTHERWISE SPECIFIED)
     Route: 042
     Dates: start: 20150116, end: 20150224

REACTIONS (2)
  - Off label use [None]
  - Leukopenia [None]

NARRATIVE: CASE EVENT DATE: 20150223
